FAERS Safety Report 22630327 (Version 1)
Quarter: 2023Q2

REPORT INFORMATION
  Report Type: Spontaneous
  Country: IN (occurrence: IN)
  Receive Date: 20230622
  Receipt Date: 20230622
  Transmission Date: 20230721
  Serious: Yes (Other)
  Sender: FDA-Public Use
  Company Number: IN-AFAXYS PHARMA, LLC-2023AFX00013

PATIENT
  Age: 50 Year
  Sex: Female
  Weight: 70 kg

DRUGS (1)
  1. LIDOCAINE [Suspect]
     Active Substance: LIDOCAINE
     Indication: Anaesthesia
     Dosage: NEBULIZED VIA MASK WITH OXYGEN FLOW RATE OF  12 L.MIN^-1

REACTIONS (1)
  - Airway complication of anaesthesia [Recovered/Resolved]
